FAERS Safety Report 12905624 (Version 1)
Quarter: 2016Q4

REPORT INFORMATION
  Report Type: Spontaneous
  Country: AU (occurrence: AU)
  Receive Date: 20161103
  Receipt Date: 20161103
  Transmission Date: 20170207
  Serious: Yes (Other)
  Sender: FDA-Public Use
  Company Number: AU-009507513-1610AUS017212

PATIENT
  Sex: Female

DRUGS (3)
  1. IMURAN [Suspect]
     Active Substance: AZATHIOPRINE
  2. HYDROCORTISONE. [Suspect]
     Active Substance: HYDROCORTISONE
     Dosage: UNK
     Dates: end: 20120608
  3. ELOCON [Suspect]
     Active Substance: MOMETASONE FUROATE
     Dosage: 12 GRAM, MONTHLY
     Route: 061
     Dates: end: 20160208

REACTIONS (2)
  - Skin atrophy [Unknown]
  - Steroid withdrawal syndrome [Unknown]
